FAERS Safety Report 7003760-9 (Version None)
Quarter: 2010Q3

REPORT INFORMATION
  Report Type: 
  Country: None (occurrence: None)
  Receive Date: 20100920
  Receipt Date: 20091130
  Transmission Date: 20110219
  Serious: No
  Sender: FDA-Public Use
  Company Number: US-WYE-H11981009

PATIENT
  Sex: Male
  Weight: 90.8 kg

DRUGS (8)
  1. PRISTIQ [Suspect]
     Indication: DEPRESSION
     Route: 048
     Dates: start: 20091025, end: 20091030
  2. PRISTIQ [Suspect]
     Route: 048
     Dates: start: 20091102
  3. SIMVASTATIN [Concomitant]
  4. GINKGO BILOBA [Concomitant]
  5. ASCORBIC ACID/ERGOCALCIFEROL/FOLIC ACID/NICOTINAMIDE/PANTHENOL/RETINOL [Concomitant]
  6. TOCOPHEROL CONCENTRATE CAP [Concomitant]
  7. ARICEPT [Concomitant]
     Indication: AMNESIA
  8. AVODART [Concomitant]

REACTIONS (4)
  - DEPRESSED MOOD [None]
  - DRUG EFFECT DECREASED [None]
  - FATIGUE [None]
  - MEDICATION RESIDUE [None]
